FAERS Safety Report 4561260-X (Version None)
Quarter: 2005Q1

REPORT INFORMATION
  Report Type: 
  Country: None (occurrence: None)
  Receive Date: 20050121
  Receipt Date: 20050112
  Transmission Date: 20050727
  Serious: No
  Sender: FDA-Public Use
  Company Number: 2005PK00101

PATIENT
  Age: 76 Year
  Sex: Female
  Weight: 71.5 kg

DRUGS (4)
  1. IRESSA [Suspect]
     Indication: NON-SMALL CELL LUNG CANCER
     Dosage: 250 MG DAILY PO
     Route: 048
     Dates: start: 20040217
  2. BRINERDIN [Concomitant]
  3. EUTHYROX [Concomitant]
  4. MARCOUMAR [Concomitant]

REACTIONS (3)
  - CONJUNCTIVITIS [None]
  - DRY SKIN [None]
  - SICCA SYNDROME [None]
